FAERS Safety Report 4384092-4 (Version None)
Quarter: 2004Q2

REPORT INFORMATION
  Report Type: 
  Country: None (occurrence: None)
  Receive Date: 20040622
  Receipt Date: 20040622
  Transmission Date: 20050107
  Serious: Yes (Death)
  Sender: FDA-Public Use
  Company Number: None

PATIENT
  Sex: Female
  Weight: 62 kg

DRUGS (20)
  1. CARBOPLATIN [Suspect]
     Dosage: 225 MG/M2
     Dates: start: 20040318
  2. CARBOPLATIN [Suspect]
     Dosage: 225 MG/M2
     Dates: start: 20040407
  3. CARBOPLATIN [Suspect]
     Dosage: 225 MG/M2
     Dates: start: 20040428
  4. PACLITAXEL [Suspect]
     Dosage: 385 MG
     Dates: start: 20040318
  5. PACLITAXEL [Suspect]
     Dosage: 385 MG
     Dates: start: 20040407
  6. PACLITAXEL [Suspect]
     Dosage: 385 MG
     Dates: start: 20040428
  7. INSULIN [Concomitant]
  8. DECADRON [Concomitant]
  9. LABETALOL HCL [Concomitant]
  10. ALBUMIN (HUMAN) [Concomitant]
  11. CLORIDINE [Concomitant]
  12. HYDRALAZINE [Concomitant]
  13. MORPHINE [Concomitant]
  14. CEFURAXIME [Concomitant]
  15. HEPARIN [Concomitant]
  16. PEPCID [Concomitant]
  17. CATAPRES [Concomitant]
  18. METOPROL [Concomitant]
  19. KCI [Concomitant]
  20. DDAVP [Concomitant]

REACTIONS (7)
  - AREFLEXIA [None]
  - BRAIN OEDEMA [None]
  - CEREBRAL HAEMORRHAGE [None]
  - ENCEPHALOPATHY [None]
  - HEMIPARESIS [None]
  - OEDEMA [None]
  - POST PROCEDURAL COMPLICATION [None]
